FAERS Safety Report 5525094-1 (Version None)
Quarter: 2007Q4

REPORT INFORMATION
  Report Type: 
  Country: None (occurrence: None)
  Receive Date: 20071119
  Receipt Date: 20071109
  Transmission Date: 20080405
  Serious: Yes (Hospitalization)
  Sender: FDA-Public Use
  Company Number: 200706IM000225

PATIENT
  Age: 80 Year
  Sex: Male

DRUGS (1)
  1. ACTIMMUNE [Suspect]
     Indication: IDIOPATHIC PULMONARY FIBROSIS
     Dosage: 200 UG, X1, SUBCUTANEOUS
     Route: 058
     Dates: start: 20070525, end: 20070525

REACTIONS (7)
  - ACUTE RESPIRATORY FAILURE [None]
  - ATELECTASIS [None]
  - IMMOBILISATION PROLONGED [None]
  - INFLUENZA LIKE ILLNESS [None]
  - PLEURAL EFFUSION [None]
  - PLEURAL FIBROSIS [None]
  - PNEUMONIA [None]
